FAERS Safety Report 10006786 (Version 1)
Quarter: 2014Q1

REPORT INFORMATION
  Report Type: Spontaneous
  Country: US (occurrence: None)
  Receive Date: 20140312
  Receipt Date: 20140312
  Transmission Date: 20141002
  Serious: No
  Sender: FDA-Public Use
  Company Number: None

PATIENT
  Sex: 0

DRUGS (1)
  1. SIMVASTATIN [Suspect]
     Indication: BLOOD CHOLESTEROL INCREASED
     Dosage: 1 BEDTIME BY MOUTH
     Route: 048
     Dates: start: 20130813, end: 201402

REACTIONS (6)
  - Disturbance in attention [None]
  - Confusional state [None]
  - Amnesia [None]
  - Confusional state [None]
  - Convulsion [None]
  - Memory impairment [None]
